FAERS Safety Report 18916807 (Version 3)
Quarter: 2021Q1

REPORT INFORMATION
  Report Type: Report from Study
  Country: MX (occurrence: MX)
  Receive Date: 20210219
  Receipt Date: 20210311
  Transmission Date: 20210420
  Serious: Yes (Life-Threatening)
  Sender: FDA-Public Use
  Company Number: NVSC2021MX039489

PATIENT
  Age: 80 Year
  Sex: Female
  Weight: 62 kg

DRUGS (3)
  1. CODIOVAN [Suspect]
     Active Substance: HYDROCHLOROTHIAZIDE\VALSARTAN
     Indication: BLOOD PRESSURE ABNORMAL
     Dosage: 1 DF, QD (160 /12.5 MG)
     Route: 048
     Dates: start: 2013
  2. DIOVAN [Suspect]
     Active Substance: VALSARTAN
     Indication: HYPERTENSION
     Dosage: UNK
     Route: 065
     Dates: start: 202011, end: 202011
  3. DIOVAN [Suspect]
     Active Substance: VALSARTAN
     Dosage: 1 DF, QD (160 MG)
     Route: 048
     Dates: start: 202012, end: 202012

REACTIONS (8)
  - Memory impairment [Unknown]
  - Hypertension [Recovered/Resolved]
  - Eye swelling [Recovered/Resolved]
  - Malaise [Recovered/Resolved]
  - Drug ineffective [Unknown]
  - Feeling abnormal [Unknown]
  - Near death experience [Unknown]
  - Peripheral swelling [Recovered/Resolved]

NARRATIVE: CASE EVENT DATE: 202012
